FAERS Safety Report 7301807-3 (Version None)
Quarter: 2011Q1

REPORT INFORMATION
  Report Type: 
  Country: None (occurrence: None)
  Receive Date: 20110218
  Receipt Date: 20110214
  Transmission Date: 20110831
  Serious: Yes (Hospitalization)
  Sender: FDA-Public Use
  Company Number: B0700274A

PATIENT
  Age: 10 Year

DRUGS (1)
  1. AUGMENTIN '125' [Suspect]
     Dosage: 1.5ML SINGLE DOSE
     Route: 042
     Dates: start: 20090101, end: 20090101

REACTIONS (3)
  - DRUG ADMINISTRATION ERROR [None]
  - PYREXIA [None]
  - VOMITING [None]
